FAERS Safety Report 10408093 (Version 2)
Quarter: 2014Q3

REPORT INFORMATION
  Report Type: Spontaneous
  Country: US (occurrence: US)
  Receive Date: 20140825
  Receipt Date: 20140825
  Transmission Date: 20150326
  Serious: Yes (Hospitalization)
  Sender: FDA-Public Use
  Company Number: US-009507513-2009SP033460

PATIENT
  Sex: Female
  Weight: 37.92 kg

DRUGS (1)
  1. NUVARING [Suspect]
     Active Substance: ETHINYL ESTRADIOL\ETONOGESTREL
     Indication: CONTRACEPTION
     Route: 067
     Dates: start: 200707, end: 200710

REACTIONS (5)
  - Deep vein thrombosis [Recovered/Resolved]
  - Platelet count decreased [Unknown]
  - Platelet count decreased [Recovered/Resolved]
  - Platelet transfusion [Recovered/Resolved]
  - Maternal exposure before pregnancy [Recovered/Resolved]

NARRATIVE: CASE EVENT DATE: 20071017
